FAERS Safety Report 25555111 (Version 1)
Quarter: 2025Q3

REPORT INFORMATION
  Report Type: Spontaneous
  Country: CA (occurrence: CA)
  Receive Date: 20250715
  Receipt Date: 20250715
  Transmission Date: 20251021
  Serious: Yes (Other)
  Sender: TEVA
  Company Number: CA-TEVA-VS-3350048

PATIENT
  Age: 63 Year
  Sex: Male

DRUGS (3)
  1. ESCITALOPRAM OXALATE [Suspect]
     Active Substance: ESCITALOPRAM OXALATE
     Indication: Antidepressant therapy
     Route: 065
  2. LOVENOX [Interacting]
     Active Substance: ENOXAPARIN SODIUM
     Indication: Tumour thrombosis
     Route: 058
  3. LOVENOX [Interacting]
     Active Substance: ENOXAPARIN SODIUM
     Indication: Tumour thrombosis
     Route: 058

REACTIONS (3)
  - Embolism venous [Unknown]
  - Drug interaction [Unknown]
  - Drug ineffective [Unknown]
